FAERS Safety Report 4960364-7 (Version None)
Quarter: 2006Q1

REPORT INFORMATION
  Report Type: 
  Country: None (occurrence: None)
  Receive Date: 20060328
  Receipt Date: 20060320
  Transmission Date: 20060701
  Serious: Yes (Hospitalization)
  Sender: FDA-Public Use
  Company Number: DEU-2006-0002034

PATIENT
  Age: 83 Year
  Sex: Female
  Weight: 53 kg

DRUGS (3)
  1. HYDROMORPHONE HCL [Suspect]
     Indication: PAIN
     Dosage: 8 MG, BID, ORAL
     Route: 048
     Dates: start: 20051021, end: 20051122
  2. IBUPROFEN [Concomitant]
  3. METOCLOPRAMIDE [Concomitant]

REACTIONS (3)
  - DIARRHOEA [None]
  - GASTROINTESTINAL DISORDER [None]
  - WEIGHT DECREASED [None]
